FAERS Safety Report 16938658 (Version 2)
Quarter: 2025Q2

REPORT INFORMATION
  Report Type: Report from Study
  Country: GB (occurrence: GB)
  Receive Date: 20191019
  Receipt Date: 20250520
  Transmission Date: 20250717
  Serious: Yes (Death, Hospitalization)
  Sender: NOVARTIS
  Company Number: GB-NOVARTISPH-NVSC2019GB007711

PATIENT
  Sex: Male
  Weight: 73 kg

DRUGS (6)
  1. COSENTYX [Suspect]
     Active Substance: SECUKINUMAB
     Indication: Psoriasis
     Dosage: 300 MG, Q4W
     Route: 065
     Dates: start: 20180129, end: 20180912
  2. CLOBETASOL [Concomitant]
     Active Substance: CLOBETASOL
     Indication: Product used for unknown indication
     Route: 065
     Dates: start: 20180912, end: 20190211
  3. SERETIDE [Concomitant]
     Active Substance: FLUTICASONE PROPIONATE\SALMETEROL XINAFOATE
     Indication: Product used for unknown indication
     Route: 065
     Dates: start: 20180912, end: 20190211
  4. Hydromol [Concomitant]
     Indication: Product used for unknown indication
     Route: 065
     Dates: start: 20180912, end: 20190211
  5. CLOBETASOL PROPIONATE [Concomitant]
     Active Substance: CLOBETASOL PROPIONATE
     Indication: Product used for unknown indication
     Route: 065
     Dates: start: 20180912, end: 20190211
  6. Balneum [Concomitant]
     Indication: Product used for unknown indication
     Route: 065
     Dates: start: 20180921, end: 20190211

REACTIONS (10)
  - Multiple organ dysfunction syndrome [Fatal]
  - Septic shock [Fatal]
  - Malaise [Fatal]
  - Hypothermia [Fatal]
  - Hypoglycaemia [Fatal]
  - Staphylococcal infection [Fatal]
  - Fall [Unknown]
  - Diarrhoea [Unknown]
  - Skin laceration [Unknown]
  - Nail hypertrophy [Unknown]

NARRATIVE: CASE EVENT DATE: 20190101
